FAERS Safety Report 6211173-2 (Version None)
Quarter: 2009Q2

REPORT INFORMATION
  Report Type: 
  Country: None (occurrence: None)
  Receive Date: 20090602
  Receipt Date: 20090526
  Transmission Date: 20091009
  Serious: Yes (Hospitalization)
  Sender: FDA-Public Use
  Company Number: FR-ROCHE-634899

PATIENT
  Sex: Male

DRUGS (2)
  1. VALIUM [Suspect]
     Indication: DRUG USE FOR UNKNOWN INDICATION
     Dosage: DOSE: 3 BLISTERS, FREQ: ONCE
     Route: 048
     Dates: start: 20081111, end: 20081111
  2. MIRTAZAPINE [Suspect]
     Indication: DRUG USE FOR UNKNOWN INDICATION
     Dosage: DOSE: 4 BLISTERS, FREQ: ONCE
     Route: 048

REACTIONS (2)
  - OXYGEN SATURATION DECREASED [None]
  - SOMNOLENCE [None]
